APPROVED DRUG PRODUCT: NAPROXEN SODIUM
Active Ingredient: NAPROXEN SODIUM
Strength: 220MG
Dosage Form/Route: TABLET;ORAL
Application: A207612 | Product #001
Applicant: NOVELGENIX THERAPEUTICS PVT LTD
Approved: Nov 16, 2018 | RLD: No | RS: No | Type: DISCN